FAERS Safety Report 4978848-4 (Version None)
Quarter: 2006Q2

REPORT INFORMATION
  Report Type: 
  Country: None (occurrence: None)
  Receive Date: 20060417
  Receipt Date: 20060403
  Transmission Date: 20061013
  Serious: Yes (Hospitalization)
  Sender: FDA-Public Use
  Company Number: B0419860A

PATIENT
  Age: 64 Year
  Sex: Female

DRUGS (4)
  1. LANOXIN [Suspect]
  2. SOTALOL HCL [Suspect]
  3. VERAPAMIL [Suspect]
     Dosage: 80 MG / THREE TIMES PER DAY
  4. WARFARIN SODIUM [Concomitant]

REACTIONS (20)
  - ANURIA [None]
  - ATRIAL FIBRILLATION [None]
  - BLOOD POTASSIUM INCREASED [None]
  - BRADYCARDIA [None]
  - CARDIOACTIVE DRUG LEVEL BELOW THERAPEUTIC [None]
  - CARDIOMEGALY [None]
  - DEPRESSED LEVEL OF CONSCIOUSNESS [None]
  - DRUG INTERACTION POTENTIATION [None]
  - DRUG TOXICITY [None]
  - EMBOLISM [None]
  - GLASGOW COMA SCALE ABNORMAL [None]
  - HAEMODIALYSIS [None]
  - HYPOTENSION [None]
  - INTERNATIONAL NORMALISED RATIO INCREASED [None]
  - INTESTINAL ISCHAEMIA [None]
  - LIVER FUNCTION TEST ABNORMAL [None]
  - METABOLIC ACIDOSIS [None]
  - RENAL IMPAIRMENT [None]
  - RESPIRATORY TRACT INFECTION [None]
  - THERAPY NON-RESPONDER [None]
